FAERS Safety Report 7042820-3 (Version None)
Quarter: 2010Q4

REPORT INFORMATION
  Report Type: 
  Country: None (occurrence: None)
  Receive Date: 20101013
  Receipt Date: 20090922
  Transmission Date: 20110411
  Serious: No
  Sender: FDA-Public Use
  Company Number: US-ASTRAZENECA-2009SE14710

PATIENT
  Age: 49 Year
  Sex: Female
  Weight: 78 kg

DRUGS (4)
  1. SYMBICORT [Suspect]
     Dosage: 80/4.5 MICROGRAMS, 1 PUFF
     Route: 055
  2. PROVENT [Concomitant]
     Route: 065
  3. PERCOCET [Concomitant]
     Route: 065
  4. VITAMINS [Concomitant]
     Route: 065

REACTIONS (2)
  - ASTHMA [None]
  - CHEST PAIN [None]
